FAERS Safety Report 14239423 (Version 1)
Quarter: 2017Q4

REPORT INFORMATION
  Report Type: Spontaneous
  Country: US (occurrence: US)
  Receive Date: 20171127
  Receipt Date: 20171127
  Transmission Date: 20180321
  Serious: Yes (Hospitalization)
  Sender: FDA-Public Use
  Company Number: None

PATIENT
  Age: 35 Year
  Sex: Female
  Weight: 58.5 kg

DRUGS (3)
  1. LEVOFLOXACIN. [Suspect]
     Active Substance: LEVOFLOXACIN
     Indication: POSTOPERATIVE WOUND INFECTION
     Dosage: ?          QUANTITY:7 TABLET(S);?
     Route: 048
     Dates: start: 20171126, end: 20171127
  2. ACETAMINOPHEN. [Concomitant]
     Active Substance: ACETAMINOPHEN
  3. IBUPROFEN. [Concomitant]
     Active Substance: IBUPROFEN

REACTIONS (11)
  - Dysarthria [None]
  - Eye swelling [None]
  - Confusional state [None]
  - Back pain [None]
  - Aphasia [None]
  - Tremor [None]
  - Neck pain [None]
  - Hyperaesthesia [None]
  - Photophobia [None]
  - Hyperacusis [None]
  - Headache [None]

NARRATIVE: CASE EVENT DATE: 20171126
